FAERS Safety Report 5301540-3 (Version None)
Quarter: 2007Q2

REPORT INFORMATION
  Report Type: 
  Country: None (occurrence: None)
  Receive Date: 20070412
  Receipt Date: 20070402
  Transmission Date: 20071010
  Serious: Yes (Death, Other)
  Sender: FDA-Public Use
  Company Number: WAES 0703USA02054

PATIENT
  Age: 21 Year
  Sex: Male

DRUGS (5)
  1. DECADRON [Suspect]
     Indication: T-CELL LYMPHOMA RECURRENT
     Dosage: 40  MG/DAILY PO
     Route: 048
  2. INJ IFOMIDE (IFOSFAMIDE) [Suspect]
     Indication: T-CELL LYMPHOMA RECURRENT
     Dosage: 2500 MG/DAILY IV
     Route: 042
  3. ETOPOSIDE [Suspect]
     Indication: T-CELL LYMPHOMA RECURRENT
     Dosage: 250 MG/DAILY
  4. CYTARABINE [Suspect]
     Indication: T-CELL LYMPHOMA RECURRENT
     Dosage: 160 MG/DAILY
  5. INJ UROMITEXAN (MESNA) [Suspect]
     Dosage: IV
     Route: 042

REACTIONS (6)
  - DECREASED IMMUNE RESPONSIVENESS [None]
  - HAEMOSIDEROSIS [None]
  - HEPATITIS E [None]
  - HEPATITIS POST TRANSFUSION [None]
  - LYMPHOPENIA [None]
  - PANCYTOPENIA [None]
